FAERS Safety Report 5169906-2 (Version None)
Quarter: 2006Q4

REPORT INFORMATION
  Report Type: 
  Country: None (occurrence: None)
  Receive Date: 20061212
  Receipt Date: 20061019
  Transmission Date: 20070319
  Serious: Yes (Life-Threatening, Hospitalization, Other)
  Sender: FDA-Public Use
  Company Number: US-ELI_LILLY_AND_COMPANY-US200610003558

PATIENT
  Age: 38 Year
  Sex: Female
  Weight: 99.319 kg

DRUGS (34)
  1. MAGNESIUM OXIDE [Concomitant]
     Dosage: 40 MG, 2/D
  2. NEURONTIN [Concomitant]
     Dosage: 1000 MG, 3/D
  3. PRINIVIL [Concomitant]
     Dosage: 2.5 MG, DAILY (1/D)
  4. PLAVIX                                  /UNK/ [Concomitant]
     Dosage: 75 MG, DAILY (1/D)
  5. LANTUS [Concomitant]
     Dosage: 36 U, EACH EVENING
  6. ALDACTONE                               /USA/ [Concomitant]
     Dosage: 25 MG, DAILY (1/D)
  7. LOPRESSOR [Concomitant]
     Dosage: 25 MG, 2/D
  8. LASIX [Concomitant]
     Dosage: 40 MG, 2/D
  9. PERCOCET [Concomitant]
     Dosage: UNK, AS NEEDED
  10. CYMBALTA [Suspect]
     Indication: DEPRESSION
     Dosage: 60 MG, UNK
     Dates: start: 20060727, end: 20060923
  11. CYMBALTA [Suspect]
     Dosage: 90 MG, UNK
     Dates: start: 20060923, end: 20060925
  12. SIMVASTATIN [Concomitant]
     Dosage: 40 MG, UNK
  13. LEVOTHYROXINE SODIUM [Concomitant]
     Dosage: 62.5 UG, UNK
  14. APAP TAB [Concomitant]
  15. ALLOPURINOL [Concomitant]
     Dosage: 100 MG, DAILY (1/D)
  16. WARFARIN SODIUM [Concomitant]
  17. ANUSOL HC [Concomitant]
  18. HYDROCORTISONE [Concomitant]
  19. HYDROXYZINE [Concomitant]
  20. LACTOBACILLUS ACIDOPHILUS [Concomitant]
  21. ACCUZYME [Concomitant]
  22. METRONIDAZOLE [Concomitant]
  23. VANCOMYCIN [Concomitant]
  24. PIPERACILLIN W/TAZOBACTAM [Concomitant]
  25. NOREPINEPHRINE HYDROCHLORIDE [Concomitant]
     Route: 042
  26. NOVOLOG [Concomitant]
  27. TOBRAMYCIN [Concomitant]
  28. SODIUM CHLORIDE [Concomitant]
  29. HEPARIN [Concomitant]
  30. NEXIUM [Concomitant]
  31. NYSTATIN [Concomitant]
     Route: 061
  32. MORPHINE [Concomitant]
  33. BALMEX OINTMENT [Concomitant]
  34. MULTIVITAMIN ^LAPPE^ [Concomitant]

REACTIONS (6)
  - METABOLIC ACIDOSIS [None]
  - PSEUDOMONAS INFECTION [None]
  - RENAL FAILURE ACUTE [None]
  - RHABDOMYOLYSIS [None]
  - SEROTONIN SYNDROME [None]
  - STAPHYLOCOCCAL INFECTION [None]
